FAERS Safety Report 18360741 (Version 1)
Quarter: 2020Q4

REPORT INFORMATION
  Report Type: Spontaneous
  Country: PL (occurrence: PL)
  Receive Date: 20201008
  Receipt Date: 20201008
  Transmission Date: 20210114
  Serious: Yes (Hospitalization, Other)
  Sender: FDA-Public Use
  Company Number: PL-AMGEN-POLSP2020159808

PATIENT
  Age: 34 Year
  Sex: Male

DRUGS (15)
  1. IFOSFAMIDE. [Suspect]
     Active Substance: IFOSFAMIDE
     Indication: HODGKIN^S DISEASE
     Dosage: 2000 MILLIGRAM/SQ. METER ON DAY 1-4
     Route: 065
     Dates: start: 201603
  2. METHYLPREDNISOLONE. [Concomitant]
     Active Substance: METHYLPREDNISOLONE
     Dosage: 1000 MILLIGRAM, QD ON DAY 1-3
     Dates: start: 20170524
  3. NIVOLUMAB [Concomitant]
     Active Substance: NIVOLUMAB
     Dosage: 3 MILLIGRAM/KILOGRAM, Q2WK
     Route: 042
     Dates: start: 20170803
  4. PREDNISONE. [Concomitant]
     Active Substance: PREDNISONE
     Dosage: UNK
     Dates: start: 201704
  5. DEXAMETHASONE. [Concomitant]
     Active Substance: DEXAMETHASONE
     Dosage: 20 MILLIGRAM
     Dates: start: 20170224
  6. VINCRISTINE [Concomitant]
     Active Substance: VINCRISTINE
     Dosage: 1.4 MILLIGRAM/SQ. METER
     Dates: start: 20170224
  7. CHLORAMBUCIL [Concomitant]
     Active Substance: CHLORAMBUCIL
     Dosage: UNK
     Dates: start: 201704
  8. THALIDOMIDE [Concomitant]
     Active Substance: THALIDOMIDE
     Dosage: 100 MILLIGRAM, QD CHRONICALLY
     Dates: start: 20170524
  9. GEMCITABINE. [Suspect]
     Active Substance: GEMCITABINE
     Indication: HODGKIN^S DISEASE
     Dosage: 800 MILLIGRAM/SQ. METER ON DAY 1-4
     Route: 065
     Dates: start: 201603
  10. BRENTUXIMAB VEDOTIN [Suspect]
     Active Substance: BRENTUXIMAB VEDOTIN
     Indication: HODGKIN^S DISEASE
     Dosage: 1.8 MILLIGRAM/SQ. METER
     Route: 065
     Dates: start: 201608, end: 201701
  11. VINORELBINE [Suspect]
     Active Substance: VINORELBINE TARTRATE
     Indication: HODGKIN^S DISEASE
     Dosage: 20 MILLIGRAM/SQ. METER ON DAY 1
     Route: 065
     Dates: start: 201603
  12. FILGRASTIM [Suspect]
     Active Substance: FILGRASTIM
     Indication: PROPHYLAXIS
     Dosage: UNK
     Route: 065
     Dates: start: 2016
  13. CYCLOPHOSPHAMIDE. [Concomitant]
     Active Substance: CYCLOPHOSPHAMIDE
     Dosage: 750 MILLIGRAM/SQ. METER
     Dates: start: 20170224
  14. MITOXANTRONE [Concomitant]
     Active Substance: MITOXANTRONE HYDROCHLORIDE
     Dosage: 10 MILLIGRAM/SQ. METER
     Dates: start: 20170224
  15. BENDAMUSTINE [Concomitant]
     Active Substance: BENDAMUSTINE
     Dosage: 90 MILLIGRAM/SQ. METER ON DAY 1-2
     Dates: start: 20170524

REACTIONS (11)
  - Arthropathy [Unknown]
  - Lymphoma [Recovering/Resolving]
  - Polyneuropathy [Recovering/Resolving]
  - Haematological malignancy [Unknown]
  - Febrile neutropenia [Unknown]
  - Bacterial vaginosis [Unknown]
  - Pneumonia [Recovered/Resolved]
  - Anaemia [Recovered/Resolved]
  - Renal impairment [Unknown]
  - Cardiac failure [Recovered/Resolved]
  - Cytopenia [Recovered/Resolved]

NARRATIVE: CASE EVENT DATE: 2016
